FAERS Safety Report 5256775-5 (Version None)
Quarter: 2007Q1

REPORT INFORMATION
  Report Type: 
  Country: None (occurrence: None)
  Receive Date: 20070306
  Receipt Date: 20070223
  Transmission Date: 20070707
  Serious: Yes (Hospitalization)
  Sender: FDA-Public Use
  Company Number: CA-PFIZER INC-2007007767

PATIENT
  Sex: Male
  Weight: 67.5 kg

DRUGS (5)
  1. IRINOTECAN HCL [Suspect]
     Indication: OESOPHAGEAL CARCINOMA
     Route: 042
  2. CISPLATIN [Suspect]
     Route: 042
  3. BUSCOPAN [Suspect]
  4. KYTRIL [Concomitant]
     Route: 048
  5. DECADRON [Concomitant]
     Route: 048

REACTIONS (5)
  - ATRIAL FIBRILLATION [None]
  - CHRONIC OBSTRUCTIVE PULMONARY DISEASE [None]
  - FEBRILE NEUTROPENIA [None]
  - ILEUS [None]
  - VENTRICULAR TACHYCARDIA [None]
